FAERS Safety Report 5578573-5 (Version None)
Quarter: 2007Q4

REPORT INFORMATION
  Report Type: 
  Country: None (occurrence: None)
  Receive Date: 20071227
  Receipt Date: 20071219
  Transmission Date: 20080405
  Serious: Yes (Hospitalization)
  Sender: FDA-Public Use
  Company Number: 2007SP025190

PATIENT
  Age: 50 Year
  Sex: Female

DRUGS (11)
  1. DESLORATADINE [Suspect]
     Indication: BRONCHIECTASIS
     Dosage: 5 MG; PO
     Route: 048
     Dates: start: 20070914, end: 20070917
  2. TERCIAN (CYAMEMAZINE) [Suspect]
     Indication: DRUG USE FOR UNKNOWN INDICATION
     Dosage: 100 GTT;QD;PO
     Route: 048
     Dates: start: 20070913, end: 20070917
  3. RISPERDAL [Suspect]
     Indication: DRUG USE FOR UNKNOWN INDICATION
     Dosage: 2 ML;HS;PO
     Route: 048
     Dates: start: 20070913, end: 20070917
  4. CLONAZEPAM [Suspect]
     Indication: DRUG USE FOR UNKNOWN INDICATION
     Dosage: 40 GTT;QD;PO; 40 GTT;QD;
     Route: 048
     Dates: start: 20070913, end: 20070917
  5. CLONAZEPAM [Suspect]
     Indication: DRUG USE FOR UNKNOWN INDICATION
     Dosage: 40 GTT;QD;PO; 40 GTT;QD;
     Route: 048
     Dates: start: 20070918
  6. GUTRON (MIDODRINE HYDROCHLORIDE) [Suspect]
     Indication: HYPOTENSION
     Dosage: 6 DF;QD; 6 DF; QD;
     Dates: start: 20070913, end: 20070917
  7. GUTRON (MIDODRINE HYDROCHLORIDE) [Suspect]
     Indication: HYPOTENSION
     Dosage: 6 DF;QD; 6 DF; QD;
     Dates: start: 20070918
  8. ZOPICLONE (ZOPICLONE) [Suspect]
     Indication: DRUG USE FOR UNKNOWN INDICATION
     Dosage: 1 DF;QPM;PO; 1 DF;QPM
     Route: 048
     Dates: start: 20070913, end: 20070917
  9. ZOPICLONE (ZOPICLONE) [Suspect]
     Indication: DRUG USE FOR UNKNOWN INDICATION
     Dosage: 1 DF;QPM;PO; 1 DF;QPM
     Route: 048
     Dates: start: 20070918
  10. SULFARLEM (ANETHOLE TRITHIONE) [Suspect]
     Indication: DRUG USE FOR UNKNOWN INDICATION
     Dosage: 2 DF;TID;PO
     Route: 048
     Dates: start: 20070913, end: 20070917
  11. LEPTICUR (TROPATEPINE HYDROCHLORIDE) [Suspect]
     Indication: DRUG USE FOR UNKNOWN INDICATION
     Dosage: 10 MG; PO
     Route: 048
     Dates: start: 20070913, end: 20070917

REACTIONS (5)
  - DYSPHAGIA [None]
  - FUNGAL INFECTION [None]
  - LIP OEDEMA [None]
  - ORAL FUNGAL INFECTION [None]
  - PARANOIA [None]
